FAERS Safety Report 20980647 (Version 1)
Quarter: 2022Q2

REPORT INFORMATION
  Report Type: Spontaneous
  Country: JP (occurrence: JP)
  Receive Date: 20220620
  Receipt Date: 20220620
  Transmission Date: 20220721
  Serious: Yes (Other)
  Sender: FDA-Public Use
  Company Number: JP-SUN PHARMACEUTICAL INDUSTRIES LTD-2022RR-341315

PATIENT
  Age: 74 Year
  Sex: Female

DRUGS (7)
  1. GEMCITABINE [Suspect]
     Active Substance: GEMCITABINE
     Indication: Adenocarcinoma
     Dosage: 1000 MILLIGRAM/SQ. METER, ON DAY 1, 8, 15, EVERY 4 WEEKS
     Route: 065
  2. IRINOTECAN [Suspect]
     Active Substance: IRINOTECAN
     Indication: Adenocarcinoma
     Dosage: 120 MILLIGRAM/SQ. METER
     Route: 065
  3. OXALIPLATIN [Suspect]
     Active Substance: OXALIPLATIN
     Indication: Adenocarcinoma
     Dosage: 65 MILLIGRAM/SQ. METER
     Route: 065
  4. LEUCOVORIN CALCIUM [Suspect]
     Active Substance: LEUCOVORIN CALCIUM
     Indication: Adenocarcinoma
     Dosage: 300 MILLIGRAM/SQ. METER
     Route: 065
  5. PACLITAXEL [Suspect]
     Active Substance: PACLITAXEL
     Indication: Adenocarcinoma
     Dosage: 125 MILLIGRAM/SQ. METER, ON DAY 1, 8, 15, EVERY 4 WEEKS
     Route: 065
  6. TS-1 [Suspect]
     Active Substance: GIMERACIL\OTERACIL\TEGAFUR
     Indication: Adenocarcinoma
     Dosage: 100 MILLIGRAM, DAILY
     Route: 048
  7. FLUOROURACIL [Suspect]
     Active Substance: FLUOROURACIL
     Indication: Adenocarcinoma
     Dosage: 2400 MILLIGRAM/SQ. METER, OVER A 46H  PERIOD

REACTIONS (7)
  - Fatigue [Unknown]
  - Neuropathy peripheral [Unknown]
  - Cardiac failure [Unknown]
  - Herpes zoster [Unknown]
  - Neutropenia [Unknown]
  - Therapeutic product effect incomplete [Unknown]
  - Disease progression [Unknown]
